FAERS Safety Report 8994845 (Version 3)
Quarter: 2013Q1

REPORT INFORMATION
  Report Type: Spontaneous
  Country: US (occurrence: None)
  Receive Date: 20121221
  Receipt Date: 20130127
  Transmission Date: 20140127
  Serious: Yes (Hospitalization, Other)
  Sender: FDA-Public Use
  Company Number: JPI-P-026854

PATIENT
  Age: 64 Year
  Sex: Female

DRUGS (1)
  1. XYREM (500 MILLIGRAMS/MILLILITERS, SOLUTION) (SODIUM OXYBATE) [Suspect]
     Indication: NARCOLEPSY
     Dosage: 4.5 GM (2.25 GM, 2 IN 1 D), ORAL
     Route: 048
     Dates: start: 20090601, end: 2009

REACTIONS (10)
  - Bone disorder [None]
  - Ankle fracture [None]
  - Dysstasia [None]
  - Pain [None]
  - Arthralgia [None]
  - Arthralgia [None]
  - Arthralgia [None]
  - Local swelling [None]
  - Gait disturbance [None]
  - Spinal osteoarthritis [None]
